FAERS Safety Report 9155058 (Version 1)
Quarter: 2013Q1

REPORT INFORMATION
  Report Type: Spontaneous
  Country: US (occurrence: US)
  Receive Date: 20130311
  Receipt Date: 20130311
  Transmission Date: 20140127
  Serious: No
  Sender: FDA-Public Use
  Company Number: US-ABBOTT-12P-163-0934327-00

PATIENT
  Age: 44 Year
  Sex: Female
  Weight: 127.12 kg

DRUGS (1)
  1. LUPRON DEPOT 11.25 MG [Suspect]
     Indication: UTERINE LEIOMYOMA
     Route: 050
     Dates: start: 20120316

REACTIONS (2)
  - Metrorrhagia [Not Recovered/Not Resolved]
  - Muscle spasms [Not Recovered/Not Resolved]
